FAERS Safety Report 5683100-8 (Version None)
Quarter: 2008Q1

REPORT INFORMATION
  Report Type: 
  Country: None (occurrence: None)
  Receive Date: 20080327
  Receipt Date: 20080317
  Transmission Date: 20080703
  Serious: Yes (Other)
  Sender: FDA-Public Use
  Company Number: US-ABBOTT-08P-163-0442911-00

PATIENT
  Sex: Female
  Weight: 108.6 kg

DRUGS (1)
  1. HUMIRA [Suspect]
     Indication: RHEUMATOID ARTHRITIS
     Route: 058
     Dates: start: 20071128

REACTIONS (10)
  - ABASIA [None]
  - FEELING HOT [None]
  - LARYNGITIS [None]
  - LYMPHADENOPATHY [None]
  - PNEUMONIA [None]
  - PYREXIA [None]
  - SEPSIS [None]
  - THROAT IRRITATION [None]
  - TREMOR [None]
  - URINARY TRACT INFECTION [None]
